FAERS Safety Report 6913931-5 (Version None)
Quarter: 2010Q3

REPORT INFORMATION
  Report Type: 
  Country: None (occurrence: None)
  Receive Date: 20100806
  Receipt Date: 20100806
  Transmission Date: 20110219
  Serious: No
  Sender: FDA-Public Use
  Company Number: None

PATIENT

DRUGS (7)
  1. SEPTRA DS [Suspect]
  2. NYSTATIN [Suspect]
  3. DIFLUCAN [Suspect]
  4. PREDNISONE [Suspect]
  5. FUROSEMIDE [Suspect]
  6. CIPRO [Suspect]
  7. DOXACILLIN [Suspect]

REACTIONS (29)
  - ALOPECIA [None]
  - BLADDER DISORDER [None]
  - BLADDER SPASM [None]
  - CANDIDIASIS [None]
  - DEEP VEIN THROMBOSIS [None]
  - DRUG INEFFECTIVE [None]
  - DRUG WITHDRAWAL SYNDROME [None]
  - ECONOMIC PROBLEM [None]
  - EYE DISORDER [None]
  - FEAR OF DISEASE [None]
  - GASTRIC DISORDER [None]
  - GASTROINTESTINAL DISORDER [None]
  - HYPERAESTHESIA [None]
  - KIDNEY INFECTION [None]
  - OEDEMA PERIPHERAL [None]
  - ONYCHOMADESIS [None]
  - OROPHARYNGEAL BLISTERING [None]
  - PRODUCT QUALITY ISSUE [None]
  - SCAR [None]
  - SKIN DISCOLOURATION [None]
  - SKIN ULCER [None]
  - SQUAMOUS CELL CARCINOMA [None]
  - STEVENS-JOHNSON SYNDROME [None]
  - TOXIC EPIDERMAL NECROLYSIS [None]
  - UNEVALUABLE EVENT [None]
  - URETHRAL SYNDROME [None]
  - URINARY INCONTINENCE [None]
  - URINARY TRACT INFECTION [None]
  - VEIN DISORDER [None]
